FAERS Safety Report 4978365-1 (Version None)
Quarter: 2006Q2

REPORT INFORMATION
  Report Type: 
  Country: None (occurrence: None)
  Receive Date: 20060417
  Receipt Date: 20060407
  Transmission Date: 20061013
  Serious: Yes (Hospitalization, Other)
  Sender: FDA-Public Use
  Company Number: HQWYE702207APR06

PATIENT
  Age: 40 Year
  Sex: Male

DRUGS (7)
  1. RHINADVIL (IBUPROFEN/PSEUDOEPHEDRINE HYDROCHLORIDE, TABLET) [Suspect]
     Indication: PHARYNGITIS
     Dosage: 6 TABLETS DAILY
     Route: 048
     Dates: start: 20060221, end: 20060222
  2. RHINADVIL (IBUPROFEN/PSEUDOEPHEDRINE HYDROCHLORIDE, TABLET) [Suspect]
     Indication: RHINITIS
     Dosage: 6 TABLETS DAILY
     Route: 048
     Dates: start: 20060221, end: 20060222
  3. RHINOTROPHYL (ETHANOLAMINE TENOATE/FRAMYCETIN SULFATE) [Concomitant]
  4. HEXALYSE (BICLOTYMOL/DEQUALINIUM CHLORIDE/ENOXOLONE/LYSOZYME/PAPAIN) [Concomitant]
  5. BIOCALYPTOL-PHOLCODINE (CINEOLE/GUAIACOL/PHENOL/PHOLCODINE/SODIUM CAMS [Concomitant]
  6. TEGRETOL [Concomitant]
  7. PHENOBARBITAL TAB [Concomitant]

REACTIONS (9)
  - AREFLEXIA [None]
  - CEREBELLAR ATAXIA [None]
  - DIFFICULTY IN WALKING [None]
  - DRY MOUTH [None]
  - DYSARTHRIA [None]
  - HEADACHE [None]
  - HYPOREFLEXIA [None]
  - NAUSEA [None]
  - SPEECH DISORDER [None]
